FAERS Safety Report 20813317 (Version 1)
Quarter: 2022Q2

REPORT INFORMATION
  Report Type: Spontaneous
  Country: US (occurrence: None)
  Receive Date: 20220510
  Receipt Date: 20220510
  Transmission Date: 20220721
  Serious: Yes (Hospitalization)
  Sender: FDA-Public Use
  Company Number: None

PATIENT
  Sex: Male

DRUGS (4)
  1. ENBREL [Suspect]
     Active Substance: ETANERCEPT
     Indication: Psoriatic arthropathy
     Dosage: INJECT 1 ML (50 MG) UNDER THE SKIN (SUBCUTANEOUS INJECTION) EVERY 7 DAYS;
     Route: 058
     Dates: start: 20210806
  2. DICLOFENAC [Concomitant]
     Active Substance: DICLOFENAC
  3. NAPROXEN [Concomitant]
     Active Substance: NAPROXEN
  4. VALACYCLOVIR [Concomitant]

REACTIONS (1)
  - Surgery [None]
